FAERS Safety Report 10756187 (Version 12)
Quarter: 2018Q3

REPORT INFORMATION
  Report Type: Report from Study
  Country: US (occurrence: US)
  Receive Date: 20150202
  Receipt Date: 20180726
  Transmission Date: 20181010
  Serious: Yes (Hospitalization, Other)
  Sender: FDA-Public Use
  Company Number: US-SA-2015SA010998

PATIENT
  Age: 62 Year
  Sex: Female
  Weight: 76.2 kg

DRUGS (19)
  1. TERIFLUNOMIDE [Suspect]
     Active Substance: TERIFLUNOMIDE
     Indication: MULTIPLE SCLEROSIS
     Dosage: 14 MG,QD
     Route: 048
     Dates: start: 20141231
  2. TERIFLUNOMIDE [Suspect]
     Active Substance: TERIFLUNOMIDE
     Indication: PROGRESSIVE MULTIPLE SCLEROSIS
     Dosage: 14 MG,QD
     Route: 048
     Dates: start: 20150111, end: 20150821
  3. BACLOFEN. [Suspect]
     Active Substance: BACLOFEN
     Dosage: UNK
  4. XANAX [Concomitant]
     Active Substance: ALPRAZOLAM
     Dosage: ONE THIRD OF 0.25 MG
  5. EXCEDRIN [CAFFEINE;PARACETAMOL] [Concomitant]
     Indication: SINUS DISORDER
  6. TERIFLUNOMIDE [Suspect]
     Active Substance: TERIFLUNOMIDE
     Indication: RELAPSING-REMITTING MULTIPLE SCLEROSIS
     Dosage: 14 MG,QD
     Route: 048
     Dates: start: 20150111, end: 20150821
  7. BACLOFEN. [Suspect]
     Active Substance: BACLOFEN
     Indication: MUSCLE SPASMS
     Dosage: UNK UNK,UNK
     Route: 065
  8. TERIFLUNOMIDE [Suspect]
     Active Substance: TERIFLUNOMIDE
     Indication: CERVICAL SPINAL STENOSIS
     Dosage: 14 MG,QD
     Route: 048
     Dates: start: 20150111, end: 20150821
  9. METOPROLOL SUCCINATE. [Suspect]
     Active Substance: METOPROLOL SUCCINATE
     Indication: TACHYCARDIA
     Dosage: 100 MG,QD
     Route: 048
  10. TERIFLUNOMIDE [Suspect]
     Active Substance: TERIFLUNOMIDE
     Dosage: 14 MG,QD
     Route: 048
  11. BENAZEPRIL [Suspect]
     Active Substance: BENAZEPRIL HYDROCHLORIDE
     Indication: TACHYCARDIA
     Dosage: 100 MG,QD
     Route: 048
  12. TERIFLUNOMIDE [Suspect]
     Active Substance: TERIFLUNOMIDE
     Dosage: 14 MG,QD
     Route: 048
  13. ATENOLOL. [Concomitant]
     Active Substance: ATENOLOL
     Indication: MITRAL VALVE PROLAPSE
     Dosage: 1 DF,QD
  14. TERIFLUNOMIDE [Suspect]
     Active Substance: TERIFLUNOMIDE
     Dosage: 14 MG,QD
     Route: 048
  15. TERIFLUNOMIDE [Suspect]
     Active Substance: TERIFLUNOMIDE
     Dosage: 14 MG,QD
     Route: 048
     Dates: start: 20160812, end: 201710
  16. TERIFLUNOMIDE [Suspect]
     Active Substance: TERIFLUNOMIDE
     Dosage: 14 MG,QD
     Route: 048
     Dates: start: 20160812, end: 201710
  17. TERIFLUNOMIDE [Suspect]
     Active Substance: TERIFLUNOMIDE
     Dosage: 14 MG,QD
     Route: 048
     Dates: start: 201710
  18. EXCEDRIN [CAFFEINE;PARACETAMOL] [Concomitant]
     Indication: HEADACHE
     Dosage: UNK UNK,PRN
  19. TERIFLUNOMIDE [Suspect]
     Active Substance: TERIFLUNOMIDE
     Dosage: 14 MG,QD
     Route: 048

REACTIONS (97)
  - Viral infection [Recovered/Resolved]
  - Memory impairment [Unknown]
  - Musculoskeletal discomfort [Unknown]
  - Head discomfort [Recovering/Resolving]
  - Hypoaesthesia [Unknown]
  - Stress [Recovering/Resolving]
  - Vertigo [Recovered/Resolved]
  - Synovial cyst [Not Recovered/Not Resolved]
  - Muscle spasms [Not Recovered/Not Resolved]
  - Pain in extremity [Not Recovered/Not Resolved]
  - Localised infection [Not Recovered/Not Resolved]
  - Urinary incontinence [Recovering/Resolving]
  - Asthenia [Not Recovered/Not Resolved]
  - Dehydration [Unknown]
  - Anxiety [Unknown]
  - Skin warm [Not Recovered/Not Resolved]
  - Oedema peripheral [Unknown]
  - Pain in extremity [Unknown]
  - Headache [Not Recovered/Not Resolved]
  - Arthralgia [Not Recovered/Not Resolved]
  - Ill-defined disorder [Unknown]
  - Tendonitis [Not Recovered/Not Resolved]
  - White matter lesion [Unknown]
  - Dizziness [Unknown]
  - Vitreous floaters [Not Recovered/Not Resolved]
  - Cough [Not Recovered/Not Resolved]
  - Erythema [Not Recovered/Not Resolved]
  - Bursitis [Recovered/Resolved]
  - Synovial fluid white blood cells positive [Not Recovered/Not Resolved]
  - Balance disorder [Not Recovered/Not Resolved]
  - Musculoskeletal pain [Not Recovered/Not Resolved]
  - Diarrhoea [Unknown]
  - Alopecia [Recovered/Resolved]
  - Pain [Not Recovered/Not Resolved]
  - Tooth fracture [Not Recovered/Not Resolved]
  - Paraesthesia [Not Recovered/Not Resolved]
  - Condition aggravated [Not Recovered/Not Resolved]
  - Weight increased [Not Recovered/Not Resolved]
  - Asthenia [Not Recovered/Not Resolved]
  - Visual impairment [Unknown]
  - Depression [Unknown]
  - Alopecia [Recovered/Resolved]
  - Hepatic enzyme increased [Recovered/Resolved]
  - Limb injury [Not Recovered/Not Resolved]
  - Hemiparesis [Not Recovered/Not Resolved]
  - Memory impairment [Not Recovered/Not Resolved]
  - Macular fibrosis [Not Recovered/Not Resolved]
  - Bladder disorder [Unknown]
  - Spinal osteoarthritis [Not Recovered/Not Resolved]
  - Pain [Unknown]
  - Fatigue [Not Recovered/Not Resolved]
  - Balance disorder [Unknown]
  - Movement disorder [Unknown]
  - Frustration tolerance decreased [Unknown]
  - Lethargy [Unknown]
  - Fall [Not Recovered/Not Resolved]
  - Atrial fibrillation [Not Recovered/Not Resolved]
  - Multiple sclerosis relapse [Unknown]
  - Dyspepsia [Recovering/Resolving]
  - Impaired work ability [Unknown]
  - Hypertension [Unknown]
  - Gastrointestinal disorder [Unknown]
  - Mobility decreased [Recovering/Resolving]
  - Heart rate increased [Recovering/Resolving]
  - Hypokinesia [Unknown]
  - Arthralgia [Unknown]
  - Unevaluable event [Recovered/Resolved]
  - Dry eye [Not Recovered/Not Resolved]
  - Contusion [Not Recovered/Not Resolved]
  - Tachycardia [Not Recovered/Not Resolved]
  - Thyroid disorder [Not Recovered/Not Resolved]
  - Loss of consciousness [Not Recovered/Not Resolved]
  - Urinary tract infection [Recovered/Resolved]
  - Malaise [Recovered/Resolved]
  - Malaise [Unknown]
  - Muscle spasms [Unknown]
  - Vitamin D decreased [Recovered/Resolved]
  - Temperature intolerance [Not Recovered/Not Resolved]
  - Pruritus [Unknown]
  - Dry skin [Not Recovered/Not Resolved]
  - Pain in extremity [Unknown]
  - Condition aggravated [Unknown]
  - Hypersensitivity [Unknown]
  - Gastroenteritis viral [Recovered/Resolved]
  - Arthralgia [Not Recovered/Not Resolved]
  - Myalgia [Not Recovered/Not Resolved]
  - Cataract [Recovered/Resolved]
  - Insomnia [Recovering/Resolving]
  - Nasopharyngitis [Unknown]
  - Muscle strain [Unknown]
  - Diplopia [Recovered/Resolved]
  - Dyspnoea [Recovered/Resolved]
  - Loss of personal independence in daily activities [Not Recovered/Not Resolved]
  - Immune system disorder [Unknown]
  - Sensory disturbance [Not Recovered/Not Resolved]
  - Rash [Not Recovered/Not Resolved]
  - Corneal dystrophy [Not Recovered/Not Resolved]

NARRATIVE: CASE EVENT DATE: 2015
